FAERS Safety Report 15316770 (Version 1)
Quarter: 2018Q3

REPORT INFORMATION
  Report Type: Spontaneous
  Country: US (occurrence: US)
  Receive Date: 20180824
  Receipt Date: 20180824
  Transmission Date: 20181010
  Serious: Yes (Other)
  Sender: FDA-Public Use
  Company Number: PHEH2018US034291

PATIENT
  Sex: Female

DRUGS (1)
  1. TIMOLOL MALEATE SANDOZ [Suspect]
     Active Substance: TIMOLOL MALEATE
     Indication: GLAUCOMA
     Dosage: UNK UNK, BID
     Route: 065
     Dates: start: 20180814

REACTIONS (3)
  - Contusion [Unknown]
  - Swelling [Unknown]
  - Haemorrhage [Unknown]
